FAERS Safety Report 19667100 (Version 2)
Quarter: 2021Q3

REPORT INFORMATION
  Report Type: Other
  Country: CA (occurrence: CA)
  Receive Date: 20210806
  Receipt Date: 20210922
  Transmission Date: 20211014
  Serious: Yes (Other)
  Sender: FDA-Public Use
  Company Number: CA-AA PHARMA INC.-2021AP012756

PATIENT
  Age: 40 Year
  Sex: Female

DRUGS (25)
  1. ALLOPURINOL. [Suspect]
     Active Substance: ALLOPURINOL
     Indication: MIGRAINE
     Dosage: UNK
     Route: 065
  2. TOPIRAMATE. [Suspect]
     Active Substance: TOPIRAMATE
     Indication: MIGRAINE
     Dosage: 100 MILLIGRAM, BID
     Route: 048
  3. PROPRANOLOL [Suspect]
     Active Substance: PROPRANOLOL HYDROCHLORIDE
     Indication: MIGRAINE
     Dosage: 1 DOSAGE FORM
     Route: 065
  4. ACETAMINOPHEN. [Suspect]
     Active Substance: ACETAMINOPHEN
     Indication: MIGRAINE
     Dosage: UNK
     Route: 065
  5. GRAVOL [Suspect]
     Active Substance: DIMENHYDRINATE
     Indication: MIGRAINE
     Dosage: UNK
     Route: 065
  6. NEURONTIN [Suspect]
     Active Substance: GABAPENTIN
     Indication: MIGRAINE
     Dosage: UNK
     Route: 065
  7. ZOLMITRIPTAN. [Suspect]
     Active Substance: ZOLMITRIPTAN
     Indication: MIGRAINE
     Dosage: 1 DOSAGE FORM
     Route: 058
  8. FLUPENTIXOL;NORTRIPTYLINE [Suspect]
     Active Substance: FLUPENTIXOL\NORTRIPTYLINE
     Indication: MIGRAINE
     Dosage: 1 DOSAGE FORM
     Route: 065
  9. DICLOFENAC [Suspect]
     Active Substance: DICLOFENAC
  10. ELAVIL [Suspect]
     Active Substance: AMITRIPTYLINE HYDROCHLORIDE
     Indication: MIGRAINE
     Dosage: UNK
     Route: 065
  11. ACETAMINOPHEN;CODEINE PHOSPHATE [Suspect]
     Active Substance: ACETAMINOPHEN\CODEINE PHOSPHATE
     Indication: MIGRAINE
     Dosage: UNK
     Route: 065
  12. ERENUMAB AOOE [Suspect]
     Active Substance: ERENUMAB-AOOE
     Indication: MIGRAINE
     Dosage: UNK
     Route: 058
  13. PROPRANOLOL [Suspect]
     Active Substance: PROPRANOLOL HYDROCHLORIDE
     Dosage: UNK
     Route: 065
  14. MEFENAMIC ACID. [Suspect]
     Active Substance: MEFENAMIC ACID
     Indication: MIGRAINE
     Dosage: UNK
     Route: 065
  15. BOTULINUM TOXIN TYPE A [Suspect]
     Active Substance: BOTULINUM TOXIN TYPE A
     Indication: MIGRAINE
     Dosage: UNK
     Route: 065
  16. NORTRIPTYLINE [Suspect]
     Active Substance: NORTRIPTYLINE
     Indication: MIGRAINE
     Dosage: 1 DOSAGE FORM, QD
     Route: 065
  17. ERGOCALCIFEROL;HEXACHLOROPHENE;LIDOCAINE [Suspect]
     Active Substance: ERGOCALCIFEROL\HEXACHLOROPHENE\LIDOCAINE
     Indication: MIGRAINE
     Dosage: UNK
     Route: 065
  18. HEXACHLOROPHENE [Suspect]
     Active Substance: HEXACHLOROPHENE
     Indication: MIGRAINE
     Dosage: UNK
     Route: 065
  19. AIMOVIG [Suspect]
     Active Substance: ERENUMAB-AOOE
     Indication: MIGRAINE
     Dosage: UNK
     Route: 058
  20. MORPHINE SULFATE. [Suspect]
     Active Substance: MORPHINE SULFATE
     Indication: MIGRAINE
     Dosage: UNK
     Route: 065
  21. AIMOVIG [Suspect]
     Active Substance: ERENUMAB-AOOE
     Dosage: UNK
     Route: 065
  22. CYCLOBENZAPRINE. [Suspect]
     Active Substance: CYCLOBENZAPRINE
     Indication: PRODUCT USED FOR UNKNOWN INDICATION
     Dosage: UNK
     Route: 065
  23. PYRIDOXINE HYDROCHLORIDE;TRYPTOPHAN, L? [Suspect]
     Active Substance: PYRIDOXINE\TRYPTOPHAN
     Indication: MIGRAINE
     Dosage: UNK
     Route: 065
  24. ERGOCALCIFEROL. [Suspect]
     Active Substance: ERGOCALCIFEROL
     Indication: MIGRAINE
     Dosage: UNK
     Route: 065
  25. LIDOCAINE HYDROCHLORIDE. [Suspect]
     Active Substance: LIDOCAINE HYDROCHLORIDE
     Indication: MIGRAINE
     Dosage: UNK
     Route: 065

REACTIONS (22)
  - Discomfort [Unknown]
  - Stress [Unknown]
  - Therapeutic response decreased [Unknown]
  - Disturbance in attention [Unknown]
  - Otitis media [Unknown]
  - Tremor [Unknown]
  - Therapy partial responder [Unknown]
  - Mastoiditis [Unknown]
  - Product use in unapproved indication [Unknown]
  - Myalgia [Unknown]
  - Fatigue [Unknown]
  - Nausea [Unknown]
  - Drug ineffective for unapproved indication [Unknown]
  - Paranasal cyst [Unknown]
  - Hypotension [Unknown]
  - Off label use [Unknown]
  - Headache [Unknown]
  - Drug intolerance [Unknown]
  - Dizziness [Unknown]
  - Drug ineffective [Unknown]
  - Migraine [Unknown]
  - Vascular malformation [Unknown]
